FAERS Safety Report 8797058 (Version 3)
Quarter: 2012Q4

REPORT INFORMATION
  Report Type: 
  Country: US (occurrence: US)
  Receive Date: 20120919
  Receipt Date: 20121217
  Transmission Date: 20130627
  Serious: Yes (Death, Hospitalization)
  Sender: FDA-Public Use
  Company Number: US-ELI_LILLY_AND_COMPANY-US201209002447

PATIENT
  Age: 78 Year
  Sex: Female

DRUGS (3)
  1. HUMULIN NPH [Suspect]
     Indication: DIABETES MELLITUS
     Dosage: UNK, prn
     Dates: end: 20120907
  2. LANTUS [Concomitant]
     Dosage: 40 u, each evening
  3. APIDRA [Concomitant]
     Dosage: 10 u, tid

REACTIONS (11)
  - Cardiac failure [Fatal]
  - Myocardial ischaemia [Fatal]
  - Hip fracture [Unknown]
  - Musculoskeletal discomfort [Unknown]
  - Nervousness [Recovering/Resolving]
  - Blood glucose increased [Recovered/Resolved]
  - Hyperhidrosis [Recovering/Resolving]
  - Tremor [Recovering/Resolving]
  - Palpitations [Recovering/Resolving]
  - Heart rate irregular [Recovering/Resolving]
  - Stress [Unknown]
